FAERS Safety Report 13621179 (Version 1)
Quarter: 2017Q2

REPORT INFORMATION
  Report Type: Report from Study
  Country: AT (occurrence: AT)
  Receive Date: 20170607
  Receipt Date: 20170607
  Transmission Date: 20170830
  Serious: Yes (Hospitalization)
  Sender: FDA-Public Use
  Company Number: AT-ALLERGAN-1704103US

PATIENT
  Age: 29 Year
  Sex: Female
  Weight: 100 kg

DRUGS (148)
  1. RIVOTRIL [Concomitant]
     Active Substance: CLONAZEPAM
     Dosage: UNK
     Route: 065
     Dates: start: 20151215, end: 20151226
  2. NEUROTOP RETARD [Concomitant]
     Active Substance: CARBAMAZEPINE
     Indication: PRODUCT USED FOR UNKNOWN INDICATION
     Dosage: 300 MG, QD
     Route: 065
     Dates: start: 20151126, end: 20151130
  3. TEMESTA [Concomitant]
     Active Substance: LORAZEPAM
     Dosage: 3 MG, QD
     Route: 065
     Dates: start: 20151123, end: 20151123
  4. TEMESTA [Concomitant]
     Active Substance: LORAZEPAM
     Dosage: 8.75 MG, QD
     Route: 065
     Dates: start: 20151111, end: 20151111
  5. QUILONORM RETARD [Concomitant]
     Active Substance: LITHIUM CARBONATE
     Indication: PRODUCT USED FOR UNKNOWN INDICATION
     Dosage: 450 MG, QD
     Route: 065
     Dates: start: 20151216, end: 20151217
  6. QUILONORM RETARD [Concomitant]
     Active Substance: LITHIUM CARBONATE
     Dosage: 900 MG, QD
     Route: 065
     Dates: start: 20151125, end: 20151201
  7. QUILONORM RETARD [Concomitant]
     Active Substance: LITHIUM CARBONATE
     Dosage: 450 MG, QD
     Route: 065
     Dates: start: 20151123, end: 20151124
  8. NOZINAN [Concomitant]
     Active Substance: LEVOMEPROMAZINE
     Dosage: 100 MG, QD
     Route: 065
     Dates: start: 20151123, end: 20151123
  9. INDERAL [Concomitant]
     Active Substance: PROPRANOLOL HYDROCHLORIDE
     Indication: PRODUCT USED FOR UNKNOWN INDICATION
     Dosage: 20 MG, QD
     Route: 065
     Dates: start: 20151215, end: 20151215
  10. INDERAL [Concomitant]
     Active Substance: PROPRANOLOL HYDROCHLORIDE
     Dosage: 90 MG, QD
     Route: 065
     Dates: start: 20151208, end: 20151210
  11. ADASUVE [Concomitant]
     Active Substance: LOXAPINE
     Indication: PRODUCT USED FOR UNKNOWN INDICATION
     Dosage: 1 DF, QD
     Route: 065
     Dates: start: 20160112, end: 20160112
  12. ZYPREXA [Suspect]
     Active Substance: OLANZAPINE
     Indication: BIPOLAR DISORDER
     Dosage: 10 MG, QD
     Route: 065
     Dates: start: 20151204, end: 20151204
  13. ZYPREXA [Suspect]
     Active Substance: OLANZAPINE
     Dosage: 20 MG, QD
     Route: 065
     Dates: start: 20151203, end: 20151203
  14. ZYPREXA [Suspect]
     Active Substance: OLANZAPINE
     Dosage: 20 MG, QD
     Route: 065
     Dates: start: 20151108, end: 20151108
  15. ABILIFY [Suspect]
     Active Substance: ARIPIPRAZOLE
     Dosage: 5 MG, QD
     Route: 065
     Dates: start: 20151107, end: 20151111
  16. DEPAKINE CR [Concomitant]
     Active Substance: VALPROATE SODIUM
     Indication: PRODUCT USED FOR UNKNOWN INDICATION
     Dosage: 250 MG, QD
     Route: 065
     Dates: start: 20160114, end: 20160114
  17. DEPAKINE CR [Concomitant]
     Active Substance: VALPROATE SODIUM
     Dosage: 250 MG, QD
     Route: 065
     Dates: start: 20160107, end: 20160107
  18. LAMICTAL [Concomitant]
     Active Substance: LAMOTRIGINE
     Dosage: 100 MG, QD
     Route: 065
     Dates: start: 20151109, end: 20151122
  19. LEPONEX [Concomitant]
     Active Substance: CLOZAPINE
     Dosage: 100 MG, QD
     Route: 065
     Dates: start: 20151217, end: 20151217
  20. SYCREST [Concomitant]
     Active Substance: ASENAPINE MALEATE
     Indication: PRODUCT USED FOR UNKNOWN INDICATION
     Dosage: 5 MG, QD
     Route: 065
     Dates: start: 20160111, end: 20160112
  21. SYCREST [Concomitant]
     Active Substance: ASENAPINE MALEATE
     Dosage: 10 MG, QD
     Route: 065
     Dates: start: 20151231, end: 20160110
  22. RIVOTRIL [Concomitant]
     Active Substance: CLONAZEPAM
     Dosage: UNK
     Route: 065
     Dates: start: 20160105, end: 20160118
  23. DOMINAL (PROTHIPENDYL HYDROCHLORIDE) [Concomitant]
     Active Substance: PROTHIPENDYL HYDROCHLORIDE
     Dosage: 120 MG, QD
     Route: 065
     Dates: start: 201511, end: 201511
  24. NEUROTOP RETARD [Concomitant]
     Active Substance: CARBAMAZEPINE
     Dosage: 900 MG, QD
     Route: 065
     Dates: start: 201510, end: 20151108
  25. TEMESTA [Concomitant]
     Active Substance: LORAZEPAM
     Dosage: 4.5 MG, QD
     Route: 065
     Dates: start: 20151129, end: 20151130
  26. STERIMAR NOSE SPRAY [Concomitant]
     Indication: PRODUCT USED FOR UNKNOWN INDICATION
     Dosage: UNK
     Route: 045
     Dates: start: 20160103, end: 20160115
  27. QUILONORM RETARD [Concomitant]
     Active Substance: LITHIUM CARBONATE
     Dosage: 675 MG, QD
     Route: 065
     Dates: start: 20151204, end: 20151206
  28. INDERAL [Concomitant]
     Active Substance: PROPRANOLOL HYDROCHLORIDE
     Dosage: 40 MG, QD
     Route: 065
     Dates: start: 20151212, end: 20151212
  29. AKINETON [Concomitant]
     Active Substance: BIPERIDEN HYDROCHLORIDE
     Dosage: 4 MG, QD
     Route: 065
     Dates: start: 20151120, end: 20151120
  30. ADASUVE [Concomitant]
     Active Substance: LOXAPINE
     Dosage: 1 DF, QD
     Route: 065
     Dates: start: 20151215, end: 20151215
  31. ESCITALOPRAM OXALATE UNK [Suspect]
     Active Substance: ESCITALOPRAM OXALATE
     Indication: BIPOLAR DISORDER
     Dosage: 10 MG, QD
     Dates: start: 20151113, end: 20151120
  32. ZYPREXA [Suspect]
     Active Substance: OLANZAPINE
     Dosage: 25 MG, QD
     Route: 065
     Dates: start: 20151109, end: 20151109
  33. ABILIFY [Suspect]
     Active Substance: ARIPIPRAZOLE
     Dosage: 2.5 MG, QD
     Route: 065
     Dates: start: 20151105, end: 20151106
  34. TRITTICO RETARD [Concomitant]
     Active Substance: TRAZODONE HYDROCHLORIDE
     Dosage: 150, QD
     Route: 065
     Dates: start: 20151203, end: 20160118
  35. TOPIRAMAT [Concomitant]
     Active Substance: TOPIRAMATE
     Dosage: 100 MG, QD
     Route: 065
     Dates: start: 20151231, end: 20160104
  36. LAMICTAL [Concomitant]
     Active Substance: LAMOTRIGINE
     Dosage: 250 MG, QD
     Route: 065
     Dates: start: 20151214, end: 20151214
  37. LEPONEX [Concomitant]
     Active Substance: CLOZAPINE
     Dosage: 150 MG, QD
     Route: 065
     Dates: start: 20151228, end: 20160119
  38. SYCREST [Concomitant]
     Active Substance: ASENAPINE MALEATE
     Dosage: 15 MG, QD
     Route: 065
     Dates: start: 20151221, end: 20151230
  39. SYCREST [Concomitant]
     Active Substance: ASENAPINE MALEATE
     Dosage: 10 MG, QD
     Route: 065
     Dates: start: 20151212, end: 20151214
  40. RIVOTRIL [Concomitant]
     Active Substance: CLONAZEPAM
     Dosage: UNK
     Route: 065
     Dates: start: 20151203, end: 20151214
  41. RIVOTRIL [Concomitant]
     Active Substance: CLONAZEPAM
     Dosage: UNK
     Route: 065
     Dates: start: 20151202, end: 20151202
  42. DOMINAL (PROTHIPENDYL HYDROCHLORIDE) [Concomitant]
     Active Substance: PROTHIPENDYL HYDROCHLORIDE
     Dosage: 160 MG, QD
     Route: 065
     Dates: start: 20151105, end: 20151106
  43. TEMESTA [Concomitant]
     Active Substance: LORAZEPAM
     Dosage: 3.75 MG, QD
     Route: 065
     Dates: start: 20151215, end: 20151222
  44. TEMESTA [Concomitant]
     Active Substance: LORAZEPAM
     Dosage: 10 MG, QD
     Route: 065
     Dates: start: 20151203, end: 20151206
  45. TEMESTA [Concomitant]
     Active Substance: LORAZEPAM
     Dosage: 3 MG, QD
     Route: 065
     Dates: start: 20151116, end: 20151116
  46. TEMESTA [Concomitant]
     Active Substance: LORAZEPAM
     Dosage: 5 MG, QD
     Route: 065
     Dates: start: 20151113, end: 20151113
  47. NOZINAN [Concomitant]
     Active Substance: LEVOMEPROMAZINE
     Dosage: 50 MG, QD
     Route: 065
     Dates: start: 20151129, end: 20151130
  48. NOZINAN [Concomitant]
     Active Substance: LEVOMEPROMAZINE
     Dosage: 150 MG, QD
     Route: 065
     Dates: start: 20151111, end: 20151111
  49. ZOLDEM [Concomitant]
     Active Substance: ZOLPIDEM TARTRATE
     Indication: PRODUCT USED FOR UNKNOWN INDICATION
     Dosage: 5 MG, QD
     Route: 065
     Dates: start: 20151109, end: 20151109
  50. INDERAL [Concomitant]
     Active Substance: PROPRANOLOL HYDROCHLORIDE
     Dosage: 30 MG, QD
     Route: 065
     Dates: start: 20151213, end: 20151214
  51. ZYPREXA [Suspect]
     Active Substance: OLANZAPINE
     Dosage: 30 MG, QD
     Route: 065
     Dates: start: 20151110, end: 20151115
  52. ABILIFY [Suspect]
     Active Substance: ARIPIPRAZOLE
     Indication: BIPOLAR DISORDER
     Dosage: 5 MG, QD
     Route: 065
     Dates: start: 20151117, end: 20151117
  53. TRITTICO RETARD [Concomitant]
     Active Substance: TRAZODONE HYDROCHLORIDE
     Indication: BIPOLAR DISORDER
     Dosage: 100, QD
     Route: 065
     Dates: start: 20160119
  54. LEPONEX [Concomitant]
     Active Substance: CLOZAPINE
     Dosage: 100 MG, QD
     Route: 065
     Dates: start: 20151227, end: 20151227
  55. SYCREST [Concomitant]
     Active Substance: ASENAPINE MALEATE
     Dosage: 20 MG, QD
     Route: 065
     Dates: start: 20151216, end: 20151220
  56. SYCREST [Concomitant]
     Active Substance: ASENAPINE MALEATE
     Dosage: 15 MG, QD
     Route: 065
     Dates: start: 20151215, end: 20151215
  57. RIVOTRIL [Concomitant]
     Active Substance: CLONAZEPAM
     Dosage: UNK
     Route: 065
     Dates: start: 20151104, end: 20151105
  58. NEUROTOP RETARD [Concomitant]
     Active Substance: CARBAMAZEPINE
     Dosage: UNK
     Route: 065
     Dates: start: 20151109, end: 20151110
  59. TEMESTA [Concomitant]
     Active Substance: LORAZEPAM
     Dosage: 3.75 MG, QD
     Route: 065
     Dates: start: 20151212, end: 20151212
  60. TEMESTA [Concomitant]
     Active Substance: LORAZEPAM
     Dosage: 7.5 MG, QD
     Route: 065
     Dates: start: 20151202, end: 20151202
  61. TEMESTA [Concomitant]
     Active Substance: LORAZEPAM
     Dosage: 5.5 MG, QD
     Route: 065
     Dates: start: 20151122, end: 20151122
  62. TEMESTA [Concomitant]
     Active Substance: LORAZEPAM
     Dosage: 8 MG, QD
     Route: 065
     Dates: start: 20151118, end: 20151119
  63. TEMESTA [Concomitant]
     Active Substance: LORAZEPAM
     Dosage: 6.25 MG, QD
     Route: 065
     Dates: start: 20151108, end: 20151110
  64. TEMESTA [Concomitant]
     Active Substance: LORAZEPAM
     Dosage: 8.75 MG, QD
     Route: 065
     Dates: start: 20151107, end: 20151107
  65. LAEVOLAC [Concomitant]
     Active Substance: LACTULOSE
     Dosage: 4 DF, QD
     Route: 065
     Dates: start: 20160116, end: 20160117
  66. NOZINAN [Concomitant]
     Active Substance: LEVOMEPROMAZINE
     Indication: PRODUCT USED FOR UNKNOWN INDICATION
     Dosage: 50 MG, QD
     Route: 065
     Dates: start: 20151222, end: 20151222
  67. NOZINAN [Concomitant]
     Active Substance: LEVOMEPROMAZINE
     Dosage: 100 MG, QD
     Route: 065
     Dates: start: 20151112, end: 20151112
  68. PRAXITEN [Concomitant]
     Active Substance: OXAZEPAM
     Indication: PRODUCT USED FOR UNKNOWN INDICATION
     Dosage: 25 MG, QD
     Route: 065
     Dates: start: 20151127, end: 20151214
  69. SIFROL [Concomitant]
     Active Substance: PRAMIPEXOLE
     Indication: PRODUCT USED FOR UNKNOWN INDICATION
     Dosage: UNK
     Route: 065
     Dates: start: 20151207, end: 20151210
  70. NUBAIN [Concomitant]
     Active Substance: NALBUPHINE HYDROCHLORIDE
     Indication: PRODUCT USED FOR UNKNOWN INDICATION
     Dosage: 1 DF, QD
     Route: 065
     Dates: start: 20151204, end: 20151206
  71. ZYPREXA [Suspect]
     Active Substance: OLANZAPINE
     Dosage: 20 MG, QD
     Route: 065
     Dates: start: 20151116, end: 20151121
  72. ZELDOX [Suspect]
     Active Substance: ZIPRASIDONE
     Dosage: 40 MG, QD
     Route: 065
     Dates: start: 20151118, end: 20151118
  73. ABILIFY [Suspect]
     Active Substance: ARIPIPRAZOLE
     Dosage: 10 MG, QD
     Route: 065
     Dates: start: 20151116, end: 20151116
  74. ABILIFY [Suspect]
     Active Substance: ARIPIPRAZOLE
     Dosage: 7.5 MG, QD
     Route: 065
     Dates: start: 20151112, end: 20151115
  75. TRITTICO RETARD [Concomitant]
     Active Substance: TRAZODONE HYDROCHLORIDE
     Dosage: 250, QD
     Route: 065
     Dates: start: 20151108, end: 20151108
  76. TOPIRAMAT [Concomitant]
     Active Substance: TOPIRAMATE
     Dosage: 125 MG, QD
     Route: 065
     Dates: start: 20160105, end: 20160106
  77. DEPAKINE CR [Concomitant]
     Active Substance: VALPROATE SODIUM
     Dosage: 750 MG, QD
     Route: 065
     Dates: start: 20160108, end: 20160111
  78. LEPONEX [Concomitant]
     Active Substance: CLOZAPINE
     Dosage: 200 MG, QD
     Route: 065
     Dates: start: 20151218, end: 20151226
  79. SYCREST [Concomitant]
     Active Substance: ASENAPINE MALEATE
     Dosage: 5 MG, QD
     Route: 065
     Dates: start: 20151210, end: 20151211
  80. RIVOTRIL [Concomitant]
     Active Substance: CLONAZEPAM
     Indication: PRODUCT USED FOR UNKNOWN INDICATION
     Dosage: 2 MG, QD
     Route: 065
     Dates: start: 20160120
  81. RIVOTRIL [Concomitant]
     Active Substance: CLONAZEPAM
     Dosage: UNK
     Route: 065
     Dates: start: 20160104, end: 20160105
  82. RIVOTRIL [Concomitant]
     Active Substance: CLONAZEPAM
     Dosage: UNK
     Route: 065
     Dates: start: 20151106, end: 20151106
  83. DOMINAL (PROTHIPENDYL HYDROCHLORIDE) [Concomitant]
     Active Substance: PROTHIPENDYL HYDROCHLORIDE
     Indication: PRODUCT USED FOR UNKNOWN INDICATION
     Dosage: 160 MG, QD
     Route: 065
     Dates: start: 20151117, end: 20151121
  84. DOMINAL (PROTHIPENDYL HYDROCHLORIDE) [Concomitant]
     Active Substance: PROTHIPENDYL HYDROCHLORIDE
     Dosage: 80 MG, QD
     Route: 065
     Dates: start: 20151115, end: 20151116
  85. NEUROTOP RETARD [Concomitant]
     Active Substance: CARBAMAZEPINE
     Dosage: 600 MG, QD
     Route: 065
     Dates: start: 20151123, end: 20151125
  86. RISPERDAL [Concomitant]
     Active Substance: RISPERIDONE
     Dosage: 2 MG, QD
     Route: 065
     Dates: start: 20151105, end: 20151105
  87. TEMESTA [Concomitant]
     Active Substance: LORAZEPAM
     Dosage: 6.25 MG, QD
     Route: 065
     Dates: start: 20151210, end: 20151211
  88. TEMESTA [Concomitant]
     Active Substance: LORAZEPAM
     Dosage: 5.5 MG, QD
     Route: 065
     Dates: start: 20151125, end: 20151125
  89. TEMESTA [Concomitant]
     Active Substance: LORAZEPAM
     Dosage: 8 MG, QD
     Route: 065
     Dates: start: 20151124, end: 20151124
  90. TEMESTA [Concomitant]
     Active Substance: LORAZEPAM
     Dosage: 4 MG, QD
     Route: 065
     Dates: start: 20151121, end: 20151121
  91. TEMESTA [Concomitant]
     Active Substance: LORAZEPAM
     Dosage: 7.5 MG, QD
     Route: 065
     Dates: start: 20151106, end: 20151106
  92. TRUXAL [Concomitant]
     Active Substance: CHLORPROTHIXENE
     Indication: PRODUCT USED FOR UNKNOWN INDICATION
     Dosage: 50 MG, QD
     Route: 065
     Dates: start: 20151105, end: 20151105
  93. GASTROZEPIN [Concomitant]
     Active Substance: PIRENZEPINE HYDROCHLORIDE
     Indication: PRODUCT USED FOR UNKNOWN INDICATION
     Dosage: 150 MG, QD
     Route: 065
     Dates: start: 20151222, end: 20160118
  94. LAEVOLAC [Concomitant]
     Active Substance: LACTULOSE
     Indication: PRODUCT USED FOR UNKNOWN INDICATION
     Dosage: 3 DF, QD
     Route: 065
     Dates: start: 20160118, end: 20160118
  95. LAEVOLAC [Concomitant]
     Active Substance: LACTULOSE
     Dosage: 6 DF, QD
     Route: 065
     Dates: start: 20160115, end: 20160115
  96. PRAXITEN [Concomitant]
     Active Substance: OXAZEPAM
     Dosage: 50 MG, QD
     Route: 065
     Dates: start: 20151120, end: 20151126
  97. INDERAL [Concomitant]
     Active Substance: PROPRANOLOL HYDROCHLORIDE
     Dosage: 30 MG, QD
     Route: 065
     Dates: start: 20151124, end: 20151125
  98. INDERAL [Concomitant]
     Active Substance: PROPRANOLOL HYDROCHLORIDE
     Dosage: 30 MG, QD
     Route: 065
     Dates: start: 20151119, end: 20151121
  99. SIFROL [Concomitant]
     Active Substance: PRAMIPEXOLE
     Dosage: UNK
     Route: 065
     Dates: start: 20151203, end: 20151206
  100. AKINETON [Concomitant]
     Active Substance: BIPERIDEN HYDROCHLORIDE
     Dosage: 2 MG, QD
     Route: 065
     Dates: start: 20151221, end: 20151221
  101. ESCITALOPRAM OXALATE UNK [Suspect]
     Active Substance: ESCITALOPRAM OXALATE
     Dosage: 10 MG, QD
     Dates: start: 20151108, end: 20151109
  102. ZYPREXA [Suspect]
     Active Substance: OLANZAPINE
     Dosage: 30 MG, QD
     Route: 065
     Dates: start: 20151122, end: 20151202
  103. ZELDOX [Suspect]
     Active Substance: ZIPRASIDONE
     Dosage: 20 MG, QD
     Route: 065
     Dates: start: 20151117, end: 20151117
  104. TOPIRAMAT [Concomitant]
     Active Substance: TOPIRAMATE
     Indication: PRODUCT USED FOR UNKNOWN INDICATION
     Dosage: 250 MG, QD
     Route: 065
     Dates: start: 20160111, end: 20160113
  105. TOPIRAMAT [Concomitant]
     Active Substance: TOPIRAMATE
     Dosage: 200 MG, QD
     Route: 065
     Dates: start: 20160108, end: 20160110
  106. TOPIRAMAT [Concomitant]
     Active Substance: TOPIRAMATE
     Dosage: 75 MG, QD
     Route: 065
     Dates: start: 20151229, end: 20151230
  107. LAMICTAL [Concomitant]
     Active Substance: LAMOTRIGINE
     Indication: PRODUCT USED FOR UNKNOWN INDICATION
     Dosage: 300 MG, QD
     Route: 065
     Dates: start: 20151215
  108. LAMICTAL [Concomitant]
     Active Substance: LAMOTRIGINE
     Dosage: 50 MG, QD
     Route: 065
     Dates: start: 201506, end: 20151104
  109. RISPERDAL [Concomitant]
     Active Substance: RISPERIDONE
     Indication: PRODUCT USED FOR UNKNOWN INDICATION
     Dosage: 1 MG, QD
     Route: 065
     Dates: start: 20151106, end: 20151106
  110. TEMESTA [Concomitant]
     Active Substance: LORAZEPAM
     Indication: PRODUCT USED FOR UNKNOWN INDICATION
     Dosage: 3 MG, QD
     Route: 065
     Dates: start: 20151223, end: 20151227
  111. TEMESTA [Concomitant]
     Active Substance: LORAZEPAM
     Dosage: 8.75 MG, QD
     Route: 065
     Dates: start: 20151207, end: 20151209
  112. TEMESTA [Concomitant]
     Active Substance: LORAZEPAM
     Dosage: 6.5 MG, QD
     Route: 065
     Dates: start: 20151128, end: 20151128
  113. TEMESTA [Concomitant]
     Active Substance: LORAZEPAM
     Dosage: 3.25 MG, QD
     Route: 065
     Dates: start: 20151114, end: 20151115
  114. NOZINAN [Concomitant]
     Active Substance: LEVOMEPROMAZINE
     Dosage: 25 MG, QD
     Route: 065
     Dates: start: 20151122, end: 20151122
  115. INDERAL [Concomitant]
     Active Substance: PROPRANOLOL HYDROCHLORIDE
     Dosage: 60 MG, QD
     Route: 065
     Dates: start: 20151202, end: 20151202
  116. MUCOBENE [Concomitant]
     Indication: PRODUCT USED FOR UNKNOWN INDICATION
     Dosage: 600 MG, QD
     Route: 065
     Dates: start: 20160103, end: 20160110
  117. ZELDOX [Suspect]
     Active Substance: ZIPRASIDONE
     Indication: PRODUCT USED FOR UNKNOWN INDICATION
     Dosage: 120 MG, QD
     Route: 065
     Dates: start: 20151120, end: 20151121
  118. ZELDOX [Suspect]
     Active Substance: ZIPRASIDONE
     Dosage: 80 MG, QD
     Route: 065
     Dates: start: 20151119, end: 20151119
  119. LEPONEX [Concomitant]
     Active Substance: CLOZAPINE
     Indication: PRODUCT USED FOR UNKNOWN INDICATION
     Dosage: 100 MG, QD
     Route: 065
     Dates: start: 20160120
  120. LEPONEX [Concomitant]
     Active Substance: CLOZAPINE
     Route: 065
     Dates: start: 20151207, end: 20151213
  121. RIVOTRIL [Concomitant]
     Active Substance: CLONAZEPAM
     Dosage: UNK
     Route: 065
     Dates: start: 20160119, end: 20160119
  122. RIVOTRIL [Concomitant]
     Active Substance: CLONAZEPAM
     Dosage: UNK
     Route: 065
     Dates: start: 20151227, end: 20160103
  123. DOMINAL (PROTHIPENDYL HYDROCHLORIDE) [Concomitant]
     Active Substance: PROTHIPENDYL HYDROCHLORIDE
     Dosage: 120 MG, QD
     Route: 065
     Dates: end: 20151104
  124. TEMESTA [Concomitant]
     Active Substance: LORAZEPAM
     Dosage: 4 MG, QD
     Route: 065
     Dates: start: 20151201, end: 20151201
  125. TEMESTA [Concomitant]
     Active Substance: LORAZEPAM
     Dosage: 4.5 MG, QD
     Route: 065
     Dates: start: 20151126, end: 20151127
  126. TEMESTA [Concomitant]
     Active Substance: LORAZEPAM
     Dosage: 3.75 MG, QD
     Route: 065
     Dates: start: 20151112, end: 20151112
  127. FLUCTINE [Concomitant]
     Active Substance: FLUOXETINE HYDROCHLORIDE
     Indication: PRODUCT USED FOR UNKNOWN INDICATION
     Dosage: 20 MG, QD
     Route: 065
     Dates: start: 20151122, end: 20151123
  128. INDERAL [Concomitant]
     Active Substance: PROPRANOLOL HYDROCHLORIDE
     Dosage: 50 MG, QD
     Route: 065
     Dates: start: 20151211, end: 20151211
  129. INDERAL [Concomitant]
     Active Substance: PROPRANOLOL HYDROCHLORIDE
     Dosage: 40 MG, QD
     Route: 065
     Dates: start: 20151203, end: 20151207
  130. AKINETON [Concomitant]
     Active Substance: BIPERIDEN HYDROCHLORIDE
     Dosage: 2 MG, QD
     Route: 065
     Dates: start: 20151202, end: 20151202
  131. ESCITALOPRAM OXALATE UNK [Suspect]
     Active Substance: ESCITALOPRAM OXALATE
     Dosage: 5 MG, QD
     Dates: start: 20151112, end: 20151112
  132. ZYPREXA [Suspect]
     Active Substance: OLANZAPINE
     Dosage: 10 MG, QD
     Route: 065
     Dates: start: 20151105, end: 20151106
  133. TRITTICO RETARD [Concomitant]
     Active Substance: TRAZODONE HYDROCHLORIDE
     Dosage: 300, QD
     Route: 065
     Dates: start: 20151109, end: 20151202
  134. TOPIRAMAT [Concomitant]
     Active Substance: TOPIRAMATE
     Dosage: 175 MG, QD
     Route: 065
     Dates: start: 20160107, end: 20160107
  135. DEPAKINE CR [Concomitant]
     Active Substance: VALPROATE SODIUM
     Dosage: 1000 MG, QD
     Route: 065
     Dates: start: 20160112, end: 20160113
  136. LAMICTAL [Concomitant]
     Active Substance: LAMOTRIGINE
     Dosage: 200 MG, QD
     Route: 065
     Dates: start: 20151123, end: 20151213
  137. NEUROTOP RETARD [Concomitant]
     Active Substance: CARBAMAZEPINE
     Dosage: 900 MG, QD
     Route: 065
     Dates: start: 20151111, end: 20151122
  138. TEMESTA [Concomitant]
     Active Substance: LORAZEPAM
     Dosage: 5 MG, QD
     Route: 065
     Dates: start: 20151213, end: 20151214
  139. TEMESTA [Concomitant]
     Active Substance: LORAZEPAM
     Dosage: 3 MG, QD
     Route: 065
     Dates: start: 20151120, end: 20151120
  140. TEMESTA [Concomitant]
     Active Substance: LORAZEPAM
     Dosage: 5.5 MG, QD
     Route: 065
     Dates: start: 20151117, end: 20151117
  141. GASTROZEPIN [Concomitant]
     Active Substance: PIRENZEPINE HYDROCHLORIDE
     Dosage: 100 MG, QD
     Route: 065
     Dates: start: 20151217, end: 20151221
  142. DIBONDRIN [Concomitant]
     Active Substance: DIPHENHYDRAMINE HYDROCHLORIDE
     Indication: PRODUCT USED FOR UNKNOWN INDICATION
     Dosage: 50 MG, QD
     Route: 065
     Dates: start: 20151109, end: 20151109
  143. AKINETON [Concomitant]
     Active Substance: BIPERIDEN HYDROCHLORIDE
     Indication: PRODUCT USED FOR UNKNOWN INDICATION
     Dosage: 2 MG, QD
     Route: 065
     Dates: start: 20151223, end: 20151223
  144. AKINETON [Concomitant]
     Active Substance: BIPERIDEN HYDROCHLORIDE
     Dosage: 4 MG, QD
     Route: 065
     Dates: start: 20151222, end: 20151222
  145. ZYPREXA [Suspect]
     Active Substance: OLANZAPINE
     Indication: BIPOLAR DISORDER
     Dosage: 20 MG, QD
     Route: 065
     Dates: start: 20151215, end: 20151215
  146. TRITTICO RETARD [Concomitant]
     Active Substance: TRAZODONE HYDROCHLORIDE
     Dosage: 150, QD
     Route: 065
     Dates: start: 20151107, end: 20151107
  147. TOPIRAMAT [Concomitant]
     Active Substance: TOPIRAMATE
     Dosage: 50 MG, QD
     Route: 065
     Dates: start: 20151223, end: 20151228
  148. LAMICTAL [Concomitant]
     Active Substance: LAMOTRIGINE
     Dosage: 75 MG, QD
     Route: 065
     Dates: start: 20151104, end: 20151108

REACTIONS (2)
  - Akathisia [Recovered/Resolved]
  - Product use in unapproved indication [Unknown]

NARRATIVE: CASE EVENT DATE: 20151120
